FAERS Safety Report 4432008-4 (Version None)
Quarter: 2004Q3

REPORT INFORMATION
  Report Type: 
  Country: None (occurrence: None)
  Receive Date: 20040819
  Receipt Date: 20040813
  Transmission Date: 20050211
  Serious: Yes (Hospitalization)
  Sender: FDA-Public Use
  Company Number: 2004-08-0502

PATIENT
  Sex: Male

DRUGS (2)
  1. REBETOL [Suspect]
     Dosage: ORAL
     Route: 048
  2. PEGASYS [Suspect]
     Dosage: SUBCUTANEOUS
     Route: 058

REACTIONS (1)
  - PSYCHOTIC DISORDER [None]
